FAERS Safety Report 9511498 (Version 2)
Quarter: 2013Q3

REPORT INFORMATION
  Report Type: Report from Study
  Country: IT (occurrence: IT)
  Receive Date: 20130910
  Receipt Date: 20130910
  Transmission Date: 20140515
  Serious: Yes (Hospitalization)
  Sender: FDA-Public Use
  Company Number: IT-JNJFOC-20130814427

PATIENT
  Age: 36 Year
  Sex: Male
  Weight: 76 kg

DRUGS (4)
  1. PLACEBO [Suspect]
     Indication: CROHN^S DISEASE
     Dosage: WEEK 32 MAINTENANCE DOSE
     Route: 065
     Dates: start: 20130423
  2. PLACEBO [Suspect]
     Indication: CROHN^S DISEASE
     Dosage: INTRAVENOUS INFUSION
     Route: 065
     Dates: start: 20120712
  3. AZATHIOPRINE [Concomitant]
     Indication: PROPHYLAXIS
     Route: 065
     Dates: start: 20110707
  4. AZATHIOPRINE [Concomitant]
     Indication: PROPHYLAXIS
     Route: 065

REACTIONS (1)
  - Liver abscess [Recovered/Resolved]
